FAERS Safety Report 20931742 (Version 1)
Quarter: 2022Q2

REPORT INFORMATION
  Report Type: Spontaneous
  Country: US (occurrence: US)
  Receive Date: 20220608
  Receipt Date: 20220608
  Transmission Date: 20220721
  Serious: Yes (Other)
  Sender: FDA-Public Use
  Company Number: US-MYLANLABS-2022M1043184

PATIENT
  Age: 45 Year
  Sex: Male

DRUGS (2)
  1. METOPROLOL [Suspect]
     Active Substance: METOPROLOL
     Indication: Atrial tachycardia
     Dosage: UNK
  2. SCOPOLAMINE [Suspect]
     Active Substance: SCOPOLAMINE
     Indication: Atrial tachycardia
     Dosage: UNK
     Route: 062

REACTIONS (2)
  - Drug ineffective [Unknown]
  - Off label use [Unknown]
